FAERS Safety Report 19710680 (Version 2)
Quarter: 2021Q3

REPORT INFORMATION
  Report Type: Report from Study
  Country: BR (occurrence: BR)
  Receive Date: 20210817
  Receipt Date: 20210902
  Transmission Date: 20211014
  Serious: Yes (Hospitalization)
  Sender: FDA-Public Use
  Company Number: BR-ASTRAZENECA-2021A675785

PATIENT
  Age: 61 Year
  Sex: Female

DRUGS (17)
  1. NEOZINE [Concomitant]
     Active Substance: LEVOMEPROMAZINE
     Indication: DEPRESSION
     Dosage: 25 MG
  2. GLIFAGE XR [Concomitant]
     Active Substance: METFORMIN HYDROCHLORIDE
     Indication: DIABETES MELLITUS
  3. PRISTIQ EXTENDED?RELEASE [Concomitant]
     Active Substance: DESVENLAFAXINE SUCCINATE
     Indication: ANXIETY
     Dosage: 100 MG
  4. NEOZINE [Concomitant]
     Active Substance: LEVOMEPROMAZINE
     Indication: ANXIETY
     Dosage: 25 MG
  5. FASENRA [Suspect]
     Active Substance: BENRALIZUMAB
     Dosage: UNKNOWN
     Route: 058
  6. ALPRAZOLAN [Concomitant]
     Active Substance: ALPRAZOLAM
     Indication: DEPRESSION
     Dosage: 0.5 MG
  7. FLUXTAR [Concomitant]
     Indication: ANXIETY
  8. NEURAL [Concomitant]
     Active Substance: LAMOTRIGINE
     Indication: ANXIETY
  9. NPH INSULIN [Concomitant]
     Active Substance: INSULIN BEEF
     Indication: DIABETES MELLITUS
  10. FLUXTAR [Concomitant]
     Indication: DEPRESSION
  11. NEURAL [Concomitant]
     Active Substance: LAMOTRIGINE
     Indication: DEPRESSION
  12. ALPRAZOLAN [Concomitant]
     Active Substance: ALPRAZOLAM
     Indication: ANXIETY
     Dosage: 0.5 MG
  13. ALENIA [Concomitant]
     Indication: ASTHMA
  14. CLENIL [Concomitant]
     Active Substance: BECLOMETHASONE DIPROPIONATE
     Indication: ASTHMA
  15. PRISTIQ EXTENDED?RELEASE [Concomitant]
     Active Substance: DESVENLAFAXINE SUCCINATE
     Indication: DEPRESSION
     Dosage: 100 MG
  16. PREDNISONE. [Concomitant]
     Active Substance: PREDNISONE
     Indication: ASTHMA
     Dosage: 0.5
  17. SPIRIVA [Concomitant]
     Active Substance: TIOTROPIUM BROMIDE MONOHYDRATE
     Indication: ASTHMA

REACTIONS (5)
  - Gastrointestinal disorder [Recovering/Resolving]
  - Inappropriate schedule of product administration [Unknown]
  - Pancreatic cyst [Not Recovered/Not Resolved]
  - Erosive oesophagitis [Recovered/Resolved]
  - Gastritis [Recovered/Resolved]

NARRATIVE: CASE EVENT DATE: 202107
